FAERS Safety Report 22650879 (Version 3)
Quarter: 2025Q2

REPORT INFORMATION
  Report Type: Report from Study
  Country: CA (occurrence: CA)
  Receive Date: 20230628
  Receipt Date: 20250523
  Transmission Date: 20250717
  Serious: Yes (Hospitalization, Other)
  Sender: BIOCON
  Company Number: CA-MYLANLABS-2023M1063167

PATIENT

DRUGS (2)
  1. HULIO [Suspect]
     Active Substance: ADALIMUMAB-FKJP
     Indication: Ankylosing spondylitis
     Route: 058
     Dates: start: 20230503
  2. HULIO [Suspect]
     Active Substance: ADALIMUMAB-FKJP
     Route: 058
     Dates: start: 20230420

REACTIONS (7)
  - Cellulitis [Unknown]
  - Illness [Unknown]
  - Pain [Unknown]
  - Diarrhoea [Unknown]
  - Erythema [Unknown]
  - Peripheral swelling [Unknown]
  - Gait disturbance [Unknown]
